FAERS Safety Report 4944561-2 (Version None)
Quarter: 2006Q1

REPORT INFORMATION
  Report Type: 
  Country: None (occurrence: None)
  Receive Date: 20060117
  Receipt Date: 20051027
  Transmission Date: 20060701
  Serious: No
  Sender: FDA-Public Use
  Company Number: 2005148610

PATIENT
  Sex: Female
  Weight: 65.7716 kg

DRUGS (4)
  1. MACUGEN [Suspect]
     Indication: MACULAR DEGENERATION
  2. POVIDONE IODINE [Suspect]
     Indication: ILL-DEFINED DISORDER
     Dates: start: 20050101
  3. VITAMINS [Concomitant]
  4. HERBAL PREPARATION [Concomitant]

REACTIONS (5)
  - DYSPHAGIA [None]
  - ENDODONTIC PROCEDURE [None]
  - PARAESTHESIA ORAL [None]
  - PHARYNGEAL OEDEMA [None]
  - SINUS HEADACHE [None]
